FAERS Safety Report 4476851-4 (Version None)
Quarter: 2004Q4

REPORT INFORMATION
  Report Type: 
  Country: None (occurrence: None)
  Receive Date: 20041013
  Receipt Date: 20041001
  Transmission Date: 20050328
  Serious: Yes (Hospitalization)
  Sender: FDA-Public Use
  Company Number: 200413575BCC

PATIENT
  Age: 81 Year
  Sex: Male
  Weight: 83.9154 kg

DRUGS (6)
  1. ALEVE [Suspect]
     Indication: BACK PAIN
     Dosage: 220 MG, ONCE, ORAL; SEE IMAGE
     Route: 048
     Dates: start: 20040715, end: 20040716
  2. ALEVE [Suspect]
     Indication: BACK PAIN
     Dosage: 220 MG, ONCE, ORAL; SEE IMAGE
     Route: 048
     Dates: start: 20040711
  3. TYLENOL [Concomitant]
  4. PRANDIN [Concomitant]
  5. ENALAPRIL MALEATE [Concomitant]
  6. LOVASTATIN [Concomitant]

REACTIONS (3)
  - AORTIC VALVE STENOSIS [None]
  - CARDIAC FAILURE CONGESTIVE [None]
  - WHEEZING [None]
